FAERS Safety Report 8263533-6 (Version None)
Quarter: 2012Q1

REPORT INFORMATION
  Report Type: 
  Country: None (occurrence: None)
  Receive Date: 20120327
  Receipt Date: 20090129
  Transmission Date: 20120608
  Serious: Yes (Other)
  Sender: FDA-Public Use
  Company Number: PHEH2009US01279

PATIENT
  Age: 85 Year

DRUGS (1)
  1. GLEEVEC [Suspect]
     Indication: CHRONIC MYELOID LEUKAEMIA
     Dosage: 400 MG, QD
     Dates: start: 20010101

REACTIONS (2)
  - CARDIAC FAILURE CONGESTIVE [None]
  - EJECTION FRACTION DECREASED [None]
